FAERS Safety Report 17771696 (Version 1)
Quarter: 2020Q2

REPORT INFORMATION
  Report Type: Spontaneous
  Country: AU (occurrence: AU)
  Receive Date: 20200512
  Receipt Date: 20200512
  Transmission Date: 20200714
  Serious: Yes (Hospitalization, Other)
  Sender: FDA-Public Use
  Company Number: AU-BAXTER-2020BAX009690

PATIENT

DRUGS (8)
  1. AZATHIOPRINE. [Suspect]
     Active Substance: AZATHIOPRINE
     Indication: POLYARTERITIS NODOSA
     Route: 065
  2. METHOTREXATE. [Suspect]
     Active Substance: METHOTREXATE
     Indication: POLYARTERITIS NODOSA
     Route: 065
  3. ADALIMUMAB [Suspect]
     Active Substance: ADALIMUMAB
     Indication: POLYARTERITIS NODOSA
     Route: 065
  4. PREDNISOLONE. [Suspect]
     Active Substance: PREDNISOLONE
     Indication: POLYARTERITIS NODOSA
     Dosage: 15-35 MG, MODERATE TO HIGH DOSE.
     Route: 065
  5. TOCILIZUMAB. [Suspect]
     Active Substance: TOCILIZUMAB
     Indication: POLYARTERITIS NODOSA
     Route: 042
  6. INFLIXIMAB [Suspect]
     Active Substance: INFLIXIMAB
     Indication: POLYARTERITIS NODOSA
     Route: 065
  7. ENDOXAN CYCLOPHOSPHAMIDE 2G (AS MONOHYDRATE) POWDER FOR INJECTION VIAL [Suspect]
     Active Substance: CYCLOPHOSPHAMIDE
     Indication: POLYARTERITIS NODOSA
     Route: 065
  8. ANAKINRA [Suspect]
     Active Substance: ANAKINRA
     Indication: POLYARTERITIS NODOSA
     Route: 058

REACTIONS (5)
  - Polyarteritis nodosa [Unknown]
  - Condition aggravated [Unknown]
  - Inflammation [Unknown]
  - Toxicity to various agents [Unknown]
  - Injection site hypersensitivity [Unknown]
